FAERS Safety Report 23870347 (Version 1)
Quarter: 2024Q2

REPORT INFORMATION
  Report Type: Spontaneous
  Country: US (occurrence: None)
  Receive Date: 20240517
  Receipt Date: 20240517
  Transmission Date: 20240716
  Serious: No
  Sender: FDA-Public Use
  Company Number: 2024A106688

PATIENT
  Sex: Male

DRUGS (1)
  1. LOKELMA [Suspect]
     Active Substance: SODIUM ZIRCONIUM CYCLOSILICATE
     Route: 048

REACTIONS (8)
  - Product dose omission issue [Unknown]
  - Urine abnormality [Unknown]
  - Constipation [Unknown]
  - Blood potassium abnormal [Unknown]
  - Urine potassium increased [Unknown]
  - Drug ineffective [Unknown]
  - Blood urea increased [Unknown]
  - Blood creatinine increased [Unknown]
